FAERS Safety Report 9850845 (Version 1)
Quarter: 2014Q1

REPORT INFORMATION
  Report Type: Spontaneous
  Country: US (occurrence: None)
  Receive Date: 20140124
  Receipt Date: 20140124
  Transmission Date: 20141002
  Serious: Yes (Death)
  Sender: FDA-Public Use
  Company Number: FK201400145

PATIENT
  Age: 22 Year
  Sex: Male

DRUGS (4)
  1. DIPHENHYDRAMINE INJECTION (MANUFACTURER UNKNOWN (DIPHENHYDRAMINE HYDROCHLORIDE) (DIPHENHYDRAMINE HYDROCHLORIDE) [Suspect]
     Indication: PRODUCT USED FOR UNKNOWN INDICATION
     Dosage: UNKNOWN
  2. HEROIN [Suspect]
     Indication: PRODUCT USED FOR UNKNOWN INDICATION
     Dosage: UNKNOWN
  3. DOXYLAMINE (DOXYLAMINE) [Suspect]
     Indication: PRODUCT USED FOR UNKNOWN INDICATION
     Dosage: UNKNOWN
  4. DEXTROMETHORPHAN (DEXTROMETHORPHAN) [Suspect]
     Indication: PRODUCT USED FOR UNKNOWN INDICATION
     Dosage: UNKNOWN

REACTIONS (2)
  - Toxicity to various agents [None]
  - Drug abuse [None]
